FAERS Safety Report 4577588-3 (Version None)
Quarter: 2005Q1

REPORT INFORMATION
  Report Type: 
  Country: None (occurrence: None)
  Receive Date: 20050127
  Receipt Date: 20041006
  Transmission Date: 20050727
  Serious: No
  Sender: FDA-Public Use
  Company Number: US_0410107116

PATIENT
  Age: 13 Year
  Sex: Male

DRUGS (1)
  1. STRATTERA [Suspect]
     Indication: ATTENTION DEFICIT/HYPERACTIVITY DISORDER

REACTIONS (3)
  - ABNORMAL BEHAVIOUR [None]
  - ANGER [None]
  - IMPULSE-CONTROL DISORDER [None]
